FAERS Safety Report 9415479 (Version 2)
Quarter: 2013Q3

REPORT INFORMATION
  Report Type: Spontaneous
  Country: US (occurrence: US)
  Receive Date: 20130723
  Receipt Date: 20130812
  Transmission Date: 20140515
  Serious: Yes (Death)
  Sender: FDA-Public Use
  Company Number: US-PFIZER INC-2013211401

PATIENT
  Age: 75 Year
  Sex: Male

DRUGS (2)
  1. INLYTA [Suspect]
     Indication: RENAL CANCER METASTATIC
     Dosage: 5 MG, 2X/DAY
     Route: 048
     Dates: start: 20130612, end: 20130716
  2. MEGACE [Suspect]
     Indication: DECREASED APPETITE
     Dosage: 800 MG, 2X/DAY
     Route: 048
     Dates: start: 20130327, end: 20130716

REACTIONS (1)
  - Pulmonary embolism [Fatal]
